FAERS Safety Report 4527849-9 (Version None)
Quarter: 2004Q4

REPORT INFORMATION
  Report Type: 
  Country: None (occurrence: None)
  Receive Date: 20041123
  Receipt Date: 20040729
  Transmission Date: 20050328
  Serious: Yes (Hospitalization)
  Sender: FDA-Public Use
  Company Number: ATO-04-0707

PATIENT
  Age: 53 Year
  Sex: Male
  Weight: 87.9978 kg

DRUGS (6)
  1. TRISENOX [Suspect]
     Indication: MULTIPLE MYELOMA
     Dosage: 22 MG, QD, IVI
     Dates: start: 20040601, end: 20040603
  2. MELPHALAN [Suspect]
     Indication: MULTIPLE MYELOMA
     Dosage: 8MG, 10MG, 8 MG (RESPECTIVELY) (QD), ORAL
     Route: 048
     Dates: start: 20040601, end: 20040603
  3. ASCORBIC ACID [Suspect]
     Indication: MULTIPLE MYELOMA
     Dosage: 1 GM, QD, IVI
     Dates: start: 20040601, end: 20040603
  4. ALOXI [Concomitant]
  5. AREDIA [Concomitant]
  6. ARANESP [Concomitant]

REACTIONS (6)
  - ANAEMIA [None]
  - BACK PAIN [None]
  - DYSPNOEA [None]
  - PYREXIA [None]
  - TACHYCARDIA [None]
  - TOOTHACHE [None]
